FAERS Safety Report 9858691 (Version 1)
Quarter: 2014Q1

REPORT INFORMATION
  Report Type: Spontaneous
  Country: MX (occurrence: MX)
  Receive Date: 20140131
  Receipt Date: 20140131
  Transmission Date: 20141002
  Serious: Yes (Death, Other)
  Sender: FDA-Public Use
  Company Number: MX-INCYTE CORPORATION-2014IN000199

PATIENT
  Sex: 0

DRUGS (1)
  1. JAKAVI [Suspect]
     Dosage: UNK,UNK,UNK
     Route: 065
     Dates: start: 20140107, end: 201401

REACTIONS (2)
  - Death [Fatal]
  - General physical health deterioration [Unknown]
